FAERS Safety Report 4927836-2 (Version None)
Quarter: 2006Q1

REPORT INFORMATION
  Report Type: 
  Country: None (occurrence: None)
  Receive Date: 20060228
  Receipt Date: 20060220
  Transmission Date: 20060701
  Serious: Yes (Hospitalization)
  Sender: FDA-Public Use
  Company Number: US-KINGPHARMUSA00001-K200600235

PATIENT
  Age: 82 Year
  Sex: Female

DRUGS (16)
  1. ALTACE [Suspect]
     Dosage: 2.5 MG, QD
     Route: 048
     Dates: end: 20060126
  2. ALTACE [Suspect]
     Dosage: 2.5 MG X2 OR 3, QD
     Route: 048
     Dates: start: 20060127
  3. LASILIX [Suspect]
     Dosage: UNK, QD
     Route: 048
     Dates: end: 20060102
  4. SERESTA [Suspect]
     Dosage: UNK, QD
     Route: 048
     Dates: end: 20051214
  5. SERESTA [Suspect]
     Dosage: UNK, QD
     Route: 048
     Dates: start: 20051219, end: 20051225
  6. ZYLORIC ^FAES^ [Suspect]
     Dosage: UNK, QD
     Route: 048
     Dates: start: 20050101, end: 20051213
  7. LEVOTHYROX [Concomitant]
     Route: 048
  8. DIAFUSOR [Concomitant]
     Route: 023
     Dates: start: 20050101
  9. HEMIGOCINE [Concomitant]
     Dates: start: 20050101
  10. COUMADIN [Concomitant]
     Route: 048
     Dates: start: 20060105
  11. DIAMOX [Concomitant]
     Dates: start: 20051226
  12. CARDENSIEL [Concomitant]
     Route: 048
     Dates: start: 20060101
  13. CLARITIN [Concomitant]
     Dates: start: 20051218
  14. ATARAX [Concomitant]
     Dates: start: 20051214, end: 20051218
  15. CETIRIZINE HCL [Concomitant]
     Route: 048
     Dates: start: 20051218, end: 20051227
  16. KARDEGIC [Concomitant]
     Route: 048
     Dates: start: 20050101

REACTIONS (13)
  - AORTIC VALVE STENOSIS [None]
  - C-REACTIVE PROTEIN INCREASED [None]
  - CARDIAC FAILURE [None]
  - EOSINOPHILIA [None]
  - ERYTHEMA [None]
  - GENERAL PHYSICAL HEALTH DETERIORATION [None]
  - HYPOKINESIA [None]
  - INTERSTITIAL LUNG DISEASE [None]
  - PLEURAL EFFUSION [None]
  - PRURIGO [None]
  - PRURITUS [None]
  - SCAR [None]
  - SKIN LESION [None]
